FAERS Safety Report 10781975 (Version 1)
Quarter: 2015Q1

REPORT INFORMATION
  Report Type: Spontaneous
  Country: US (occurrence: US)
  Receive Date: 20150210
  Receipt Date: 20150210
  Transmission Date: 20150721
  Serious: No
  Sender: FDA-Public Use
  Company Number: US-GLAXOSMITHKLINE-A1063280A

PATIENT

DRUGS (3)
  1. ALLI [Suspect]
     Active Substance: ORLISTAT
     Indication: WEIGHT DECREASED
     Route: 048
     Dates: start: 2013
  2. VITAMINS [Suspect]
     Active Substance: VITAMINS
  3. MUSCLE BUILDER [Suspect]
     Active Substance: DIETARY SUPPLEMENT

REACTIONS (2)
  - Drug administration error [Unknown]
  - Blood potassium increased [Not Recovered/Not Resolved]
